FAERS Safety Report 23543113 (Version 2)
Quarter: 2024Q3

REPORT INFORMATION
  Report Type: Spontaneous
  Country: GR (occurrence: GR)
  Receive Date: 20240220
  Receipt Date: 20240706
  Transmission Date: 20241016
  Serious: Yes (Other)
  Sender: CELLTRION
  Company Number: GR-CELLTRION INC.-2024GR003990

PATIENT

DRUGS (2)
  1. INFLIXIMAB [Suspect]
     Active Substance: INFLIXIMAB
     Indication: Colitis ulcerative
     Dosage: 1 DOSAGE FORM, EVERY 2 WEEKS (MAINTENANCE SCHEME)
     Route: 058
     Dates: start: 202308
  2. INFLIXIMAB [Suspect]
     Active Substance: INFLIXIMAB
     Indication: Colitis ulcerative
     Dosage: MAINTENANCE SCHEME
     Route: 042
     Dates: start: 202402

REACTIONS (1)
  - Disease recurrence [Recovering/Resolving]

NARRATIVE: CASE EVENT DATE: 20231001
